FAERS Safety Report 7794084-0 (Version None)
Quarter: 2011Q4

REPORT INFORMATION
  Report Type: 
  Country: None (occurrence: None)
  Receive Date: 20111004
  Receipt Date: 20110922
  Transmission Date: 20120403
  Serious: Yes (Other)
  Sender: FDA-Public Use
  Company Number: JP-JNJFOC-20100508961

PATIENT
  Sex: Female
  Weight: 37 kg

DRUGS (7)
  1. REMICADE [Suspect]
     Route: 042
     Dates: start: 20090911
  2. REMICADE [Suspect]
     Route: 042
     Dates: start: 20090812
  3. STEROIDS NOS [Concomitant]
     Indication: RHEUMATOID ARTHRITIS
     Route: 065
  4. NSAIDS [Concomitant]
     Indication: RHEUMATOID ARTHRITIS
     Route: 065
  5. REMICADE [Suspect]
     Indication: RHEUMATOID ARTHRITIS
     Route: 042
     Dates: start: 20090710
  6. REMICADE [Suspect]
     Route: 042
     Dates: start: 20091104
  7. RHEUMATREX [Concomitant]
     Indication: RHEUMATOID ARTHRITIS
     Route: 065

REACTIONS (5)
  - ECG SIGNS OF MYOCARDIAL ISCHAEMIA [None]
  - HEART RATE INCREASED [None]
  - ANGINA PECTORIS [None]
  - INFUSION RELATED REACTION [None]
  - BLOOD PRESSURE INCREASED [None]
